FAERS Safety Report 11653714 (Version 4)
Quarter: 2016Q2

REPORT INFORMATION
  Report Type: Spontaneous
  Country: US (occurrence: US)
  Receive Date: 20151022
  Receipt Date: 20160504
  Transmission Date: 20160815
  Serious: Yes (Other)
  Sender: FDA-Public Use
  Company Number: US-MDT-ADR-2015-02001

PATIENT
  Age: 28 Year
  Sex: Male

DRUGS (8)
  1. PREVACID [Concomitant]
     Active Substance: LANSOPRAZOLE
  2. LIORESAL [Suspect]
     Active Substance: BACLOFEN
     Dosage: 559.3 MCG/DAY
     Route: 037
  3. FLONASE [Concomitant]
     Active Substance: FLUTICASONE PROPIONATE
  4. LACTOBACILLUS [Concomitant]
     Active Substance: LACTOBACILLUS ACIDOPHILUS
  5. CETRIZINE [Concomitant]
     Active Substance: CETIRIZINE HYDROCHLORIDE
  6. VALIUM [Concomitant]
     Active Substance: DIAZEPAM
  7. PRELONE [Concomitant]
     Active Substance: PREDNISOLONE
  8. CLARITIN [Concomitant]
     Active Substance: LORATADINE

REACTIONS (5)
  - Hypertonia [Recovered/Resolved with Sequelae]
  - Agitation [Recovered/Resolved with Sequelae]
  - Drug withdrawal syndrome [Recovered/Resolved with Sequelae]
  - Pruritus [Recovered/Resolved with Sequelae]
  - Scratch [Recovered/Resolved with Sequelae]
